FAERS Safety Report 8581035-4 (Version None)
Quarter: 2012Q3

REPORT INFORMATION
  Report Type: 
  Country: None (occurrence: None)
  Receive Date: 20120809
  Receipt Date: 20120801
  Transmission Date: 20120928
  Serious: Yes (Other)
  Sender: FDA-Public Use
  Company Number: US-GENZYME-RENA-1001592

PATIENT
  Sex: Female

DRUGS (1)
  1. RENVELA [Suspect]
     Indication: PRODUCT USED FOR UNKNOWN INDICATION
     Dosage: 2.4 G, UNK
     Route: 065

REACTIONS (2)
  - PARENTERAL NUTRITION [None]
  - DIARRHOEA [None]
